FAERS Safety Report 4502855-9 (Version None)
Quarter: 2004Q4

REPORT INFORMATION
  Report Type: 
  Country: None (occurrence: None)
  Receive Date: 20041116
  Receipt Date: 20041116
  Transmission Date: 20050328
  Serious: Yes (Hospitalization)
  Sender: FDA-Public Use
  Company Number: None

PATIENT
  Sex: Female
  Weight: 104 kg

DRUGS (3)
  1. LOTREL [Suspect]
     Indication: HYPERTENSION
     Dosage: DAILY ORAL
     Route: 048
  2. ALLEGRA [Concomitant]
  3. MOTRIN` [Concomitant]

REACTIONS (1)
  - ANGIONEUROTIC OEDEMA [None]
